FAERS Safety Report 8028873-4 (Version None)
Quarter: 2012Q1

REPORT INFORMATION
  Report Type: 
  Country: None (occurrence: None)
  Receive Date: 20120106
  Receipt Date: 20120102
  Transmission Date: 20120608
  Serious: Yes (Hospitalization)
  Sender: FDA-Public Use
  Company Number: US-GLAXOSMITHKLINE-A0959644A

PATIENT
  Age: 58 Year
  Sex: Female

DRUGS (2)
  1. FLOVENT [Suspect]
     Indication: PRODUCT USED FOR UNKNOWN INDICATION
     Dosage: 110MCG UNKNOWN
     Route: 055
  2. VENTOLIN [Suspect]
     Indication: PRODUCT USED FOR UNKNOWN INDICATION
     Dosage: 90MCG UNKNOWN
     Route: 055
     Dates: start: 20091204

REACTIONS (1)
  - CONVULSION [None]
